FAERS Safety Report 8508229-8 (Version None)
Quarter: 2012Q3

REPORT INFORMATION
  Report Type: 
  Country: None (occurrence: None)
  Receive Date: 20120713
  Receipt Date: 20120705
  Transmission Date: 20120928
  Serious: Yes (Life-Threatening, Disabling)
  Sender: FDA-Public Use
  Company Number: CH-GENZYME-CLOF-1002200

PATIENT
  Sex: Female
  Weight: 50 kg

DRUGS (9)
  1. AMSACRINE [Suspect]
     Indication: ACUTE MYELOID LEUKAEMIA
     Dosage: 185 MG, UNK
     Route: 042
     Dates: start: 20120627, end: 20120627
  2. LORAZEPAM [Concomitant]
     Indication: MOOD ALTERED
     Dosage: 1 MG, UNK
     Route: 048
     Dates: start: 20120626
  3. CYTARABINE [Suspect]
     Indication: ACUTE MYELOID LEUKAEMIA
     Dosage: 1540 MG, QD
     Route: 042
     Dates: start: 20120626, end: 20120627
  4. METHYLPREDNISOLONE [Concomitant]
     Indication: PROPHYLAXIS OF NAUSEA AND VOMITING
     Dosage: 125 MG, UNK
     Route: 042
     Dates: start: 20120626
  5. CLOFARABINE [Suspect]
     Indication: ACUTE MYELOID LEUKAEMIA
     Dosage: 15.4 MG, QD
     Route: 042
     Dates: start: 20120626, end: 20120626
  6. ALLOPURINOL [Concomitant]
     Indication: PROPHYLAXIS
     Dosage: 300 MG, UNK
     Route: 048
     Dates: start: 20120626
  7. ONDANSETRON HCL [Concomitant]
     Indication: PROPHYLAXIS OF NAUSEA AND VOMITING
     Dosage: 8 MG, UNK
     Route: 042
     Dates: start: 20120626
  8. AMSACRINE [Suspect]
     Dosage: 185 MG, UNK
     Route: 042
     Dates: start: 20120627
  9. RANITIDINE [Concomitant]
     Indication: PROPHYLAXIS
     Dosage: 300 MG, UNK
     Route: 048
     Dates: start: 20120626

REACTIONS (1)
  - ELECTROCARDIOGRAM QT PROLONGED [None]
